FAERS Safety Report 9801047 (Version 1)
Quarter: 2014Q1

REPORT INFORMATION
  Report Type: Report from Study
  Country: CA (occurrence: CA)
  Receive Date: 20140107
  Receipt Date: 20140107
  Transmission Date: 20141002
  Serious: Yes (Death, Other)
  Sender: FDA-Public Use
  Company Number: CA-BAYER-2014-000622

PATIENT
  Age: 0 Day
  Sex: Female

DRUGS (2)
  1. BETASERON [Suspect]
     Dosage: UNK
     Route: 064
  2. BETASERON [Suspect]
     Dosage: UNK
     Route: 064

REACTIONS (6)
  - Death [Fatal]
  - Premature baby [None]
  - Nervous system disorder [None]
  - Mobility decreased [None]
  - Dyspnoea [None]
  - Foetal exposure during pregnancy [None]
